FAERS Safety Report 11196105 (Version 2)
Quarter: 2015Q2

REPORT INFORMATION
  Report Type: Spontaneous
  Country: US (occurrence: US)
  Receive Date: 20150617
  Receipt Date: 20150618
  Transmission Date: 20150821
  Serious: Yes (Death)
  Sender: FDA-Public Use
  Company Number: US-PFIZER INC-2015197895

PATIENT
  Age: 76 Year
  Sex: Female

DRUGS (1)
  1. PHENYTOIN SODIUM. [Suspect]
     Active Substance: PHENYTOIN SODIUM
     Indication: VENTRICULAR EXTRASYSTOLES
     Dosage: 250 MG, (OVER 3 MINUTES)
     Route: 042

REACTIONS (4)
  - Product use issue [Fatal]
  - Atrioventricular block complete [Fatal]
  - Ventricular arrhythmia [Fatal]
  - Ventricular asystole [Fatal]
